FAERS Safety Report 22201710 (Version 1)
Quarter: 2023Q2

REPORT INFORMATION
  Report Type: Spontaneous
  Country: US (occurrence: None)
  Receive Date: 20230411
  Receipt Date: 20230411
  Transmission Date: 20230721
  Serious: Yes (Hospitalization)
  Sender: FDA-Public Use
  Company Number: None

PATIENT
  Age: 70 Year
  Sex: Female
  Weight: 77.4 kg

DRUGS (13)
  1. THEOPHYLLINE [Suspect]
     Active Substance: THEOPHYLLINE
     Indication: Respiration abnormal
     Dosage: 1 CAPSULE DAILY ORAL
     Route: 048
     Dates: start: 20230331, end: 20230404
  2. ALBUTEROL SULFATE [Concomitant]
     Active Substance: ALBUTEROL SULFATE
  3. IPRATROPIUM BROMIDE [Concomitant]
     Active Substance: IPRATROPIUM BROMIDE\IPRATROPIUM BROMIDE ANHYDROUS
  4. ATORVASTATIN [Concomitant]
     Active Substance: ATORVASTATIN
  5. ROPINIROLE [Concomitant]
     Active Substance: ROPINIROLE
  6. LORATADINE [Concomitant]
     Active Substance: LORATADINE
  7. FLUTICASONE [Concomitant]
     Active Substance: FLUTICASONE
  8. LOSARTAN [Concomitant]
     Active Substance: LOSARTAN
  9. MECLIZINE [Concomitant]
     Active Substance: MECLIZINE HYDROCHLORIDE
  10. PREDNISONE [Concomitant]
     Active Substance: PREDNISONE
  11. centrum multi-vitamin woman 50 plus [Concomitant]
  12. TYLENOL EXTRA STRENGTH [Concomitant]
     Active Substance: ACETAMINOPHEN
  13. MUCINEX [Concomitant]
     Active Substance: GUAIFENESIN

REACTIONS (8)
  - Feeling abnormal [None]
  - Somnolence [None]
  - Dry mouth [None]
  - Dysphonia [None]
  - Muscular weakness [None]
  - Dysstasia [None]
  - Dizziness [None]
  - Heart rate increased [None]
